FAERS Safety Report 9868183 (Version 1)
Quarter: 2014Q1

REPORT INFORMATION
  Report Type: Spontaneous
  Country: DE (occurrence: DE)
  Receive Date: 20140204
  Receipt Date: 20140204
  Transmission Date: 20141002
  Serious: Yes (Other)
  Sender: FDA-Public Use
  Company Number: PHHY2014DE012046

PATIENT
  Sex: Male

DRUGS (2)
  1. EXFORGE [Suspect]
     Dosage: (VALS 160 MG, AMLO 5 MG), UNK
  2. EXFORGE [Suspect]
     Dosage: 0.5 DF (VALS 160 MG, AMLO 5 MG), BID

REACTIONS (4)
  - Parkinson^s disease [Unknown]
  - Tremor [Unknown]
  - Blood pressure fluctuation [Unknown]
  - Wrong technique in drug usage process [Unknown]
